FAERS Safety Report 7798511-4 (Version None)
Quarter: 2011Q4

REPORT INFORMATION
  Report Type: 
  Country: None (occurrence: None)
  Receive Date: 20111005
  Receipt Date: 20110926
  Transmission Date: 20120403
  Serious: Yes (Other)
  Sender: FDA-Public Use
  Company Number: US-ASTRAZENECA-2010SE15059

PATIENT
  Age: 63 Year
  Sex: Female

DRUGS (10)
  1. CRESTOR [Suspect]
     Route: 048
  2. LIPITOR [Concomitant]
  3. AMLODIPINE [Concomitant]
  4. LISINOPRIL [Concomitant]
  5. ACTOS [Concomitant]
  6. INSULIN [Concomitant]
  7. CRESTOR [Suspect]
     Route: 048
  8. EFFEXOR [Concomitant]
  9. ATENOLOL [Concomitant]
  10. REQUIP [Concomitant]

REACTIONS (10)
  - MEMORY IMPAIRMENT [None]
  - SYNCOPE [None]
  - LIGAMENT SPRAIN [None]
  - THERAPEUTIC RESPONSE UNEXPECTED [None]
  - MALAISE [None]
  - CAROTID ARTERY OCCLUSION [None]
  - CEREBRAL INFARCTION [None]
  - FALL [None]
  - DRUG DOSE OMISSION [None]
  - MENTAL IMPAIRMENT [None]
